FAERS Safety Report 9927782 (Version 1)
Quarter: 2014Q1

REPORT INFORMATION
  Report Type: Report from Study
  Country: US (occurrence: US)
  Receive Date: 20140227
  Receipt Date: 20140227
  Transmission Date: 20141002
  Serious: Yes (Other)
  Sender: FDA-Public Use
  Company Number: US-ROCHE-1352099

PATIENT
  Age: 81 Year
  Sex: Female

DRUGS (5)
  1. AVASTIN [Suspect]
     Indication: AGE-RELATED MACULAR DEGENERATION
     Route: 065
  2. AVASTIN [Suspect]
     Indication: VITREOUS DETACHMENT
  3. AVASTIN [Suspect]
     Indication: INTRAOCULAR LENS IMPLANT
  4. MYDRIACYL [Concomitant]
     Route: 065
  5. NEO-SYNEPHRINE [Concomitant]
     Route: 065

REACTIONS (7)
  - Blepharitis [Unknown]
  - Visual impairment [Unknown]
  - Detachment of retinal pigment epithelium [Unknown]
  - Retinal degeneration [Unknown]
  - Refraction disorder [Unknown]
  - Off label use [Unknown]
  - Macular degeneration [Unknown]
